FAERS Safety Report 13530144 (Version 1)
Quarter: 2017Q2

REPORT INFORMATION
  Report Type: Spontaneous
  Country: US (occurrence: US)
  Receive Date: 20170509
  Receipt Date: 20170509
  Transmission Date: 20170830
  Serious: No
  Sender: FDA-Public Use
  Company Number: US-009507513-1705USA001778

PATIENT
  Age: 25 Year
  Sex: Female
  Weight: 99.77 kg

DRUGS (1)
  1. NEXPLANON [Suspect]
     Active Substance: ETONOGESTREL
     Indication: CONTRACEPTION
     Dosage: 1 DF, 3 YEARS LEFT ARM
     Route: 059
     Dates: start: 20140424

REACTIONS (4)
  - Weight increased [Unknown]
  - Amenorrhoea [Unknown]
  - Menorrhagia [Unknown]
  - Abdominal pain [Unknown]
